FAERS Safety Report 19349923 (Version 1)
Quarter: 2021Q2

REPORT INFORMATION
  Report Type: Spontaneous
  Country: US (occurrence: US)
  Receive Date: 20210601
  Receipt Date: 20210601
  Transmission Date: 20210717
  Serious: Yes (Hospitalization)
  Sender: FDA-Public Use
  Company Number: None

PATIENT
  Age: 42 Year
  Sex: Male

DRUGS (4)
  1. PREDNISONE. [Concomitant]
     Active Substance: PREDNISONE
  2. VITAMIN D3 [Concomitant]
     Active Substance: CHOLECALCIFEROL
  3. VITAMIN C [Concomitant]
     Active Substance: ASCORBIC ACID
  4. MYCOPHENOLIC ARXWP HAS NOT PREVIOUSLY DISPENSED [Suspect]
     Active Substance: MYCOPHENOLIC ACID
     Indication: SARCOIDOSIS
     Route: 048

REACTIONS (3)
  - Muscle spasms [None]
  - Myalgia [None]
  - Therapy interrupted [None]
